FAERS Safety Report 17840412 (Version 2)
Quarter: 2020Q2

REPORT INFORMATION
  Report Type: Spontaneous
  Country: DE (occurrence: DE)
  Receive Date: 20200529
  Receipt Date: 20200609
  Transmission Date: 20200714
  Serious: Yes (Other)
  Sender: FDA-Public Use
  Company Number: NVSC2020DE143760

PATIENT
  Age: 36 Year
  Sex: Female
  Weight: 78 kg

DRUGS (2)
  1. METOHEXAL SUCC 47,5 MG RETARDTABLETTEN [Suspect]
     Active Substance: METOPROLOL SUCCINATE
     Indication: HYPERTENSION
     Route: 065
  2. METOPROLOL SUCCINATE. [Suspect]
     Active Substance: METOPROLOL SUCCINATE
     Indication: HYPERTENSION
     Dosage: 1-0-1VORHERIGE CHARGEN NICHT MEHR BEKANNT
     Route: 048
     Dates: start: 2015

REACTIONS (4)
  - Abortion spontaneous [Recovered/Resolved]
  - Infertility [Unknown]
  - Abortion spontaneous [Recovered/Resolved]
  - Abortion spontaneous [Recovered/Resolved]

NARRATIVE: CASE EVENT DATE: 20190916
